FAERS Safety Report 19410800 (Version 9)
Quarter: 2021Q3

REPORT INFORMATION
  Report Type: Report from Study
  Country: DE (occurrence: DE)
  Receive Date: 20210614
  Receipt Date: 20210903
  Transmission Date: 20211014
  Serious: Yes (Hospitalization)
  Sender: FDA-Public Use
  Company Number: DE-SECURA BIO, INC.-2021-SECUR-DE003321

PATIENT
  Age: 68 Year
  Sex: Female
  Weight: 80 kg

DRUGS (15)
  1. IPI?145 [Suspect]
     Active Substance: DUVELISIB
     Dosage: 75 MG, BID
     Route: 048
     Dates: start: 20210603, end: 20210626
  2. PREGABALIN. [Concomitant]
     Active Substance: PREGABALIN
     Indication: POLYNEUROPATHY
     Dosage: 50?0?150 MG, DAILY
     Route: 048
     Dates: start: 20210111
  3. FAMOTIDIN [Concomitant]
     Active Substance: FAMOTIDINE
     Indication: POST HERPETIC NEURALGIA
     Dosage: 20 MG, DAILY
     Route: 048
     Dates: start: 20210217
  4. PREDNISOLON [Concomitant]
     Active Substance: PREDNISOLONE
     Indication: EOSINOPHILIA
     Dosage: 20 MG, DAILY
     Route: 065
     Dates: start: 20210430, end: 20210504
  5. LEVOTHYROXINE. [Concomitant]
     Active Substance: LEVOTHYROXINE
     Indication: HYPOTHYROIDISM
     Dosage: 75 MG, DAILY
     Route: 048
     Dates: start: 202003
  6. METOCLOPRAMIDE HCL [Concomitant]
     Active Substance: METOCLOPRAMIDE HYDROCHLORIDE
     Indication: NAUSEA
     Dosage: 10 MG, TID
     Route: 048
     Dates: start: 20210329
  7. TINZAPARIN SODIUM [Concomitant]
     Active Substance: TINZAPARIN SODIUM
     Indication: PROPHYLAXIS
     Dosage: UNK, DAILY
     Route: 058
     Dates: start: 20210601
  8. MIRTAZAPIN [Concomitant]
     Active Substance: MIRTAZAPINE
     Indication: DEPRESSION
     Dosage: 15 MG, DAILY
     Route: 048
     Dates: start: 20210720
  9. FEXOFENADINE [Concomitant]
     Active Substance: FEXOFENADINE HYDROCHLORIDE
     Indication: HYPERSENSITIVITY
     Dosage: 180 MG, PRN
     Route: 048
     Dates: start: 202103
  10. IPI?145 [Suspect]
     Active Substance: DUVELISIB
     Indication: T-CELL LYMPHOMA REFRACTORY
     Dosage: 25 MG, BID
     Route: 048
     Dates: start: 20210203, end: 20210602
  11. METOPROLOL. [Concomitant]
     Active Substance: METOPROLOL
     Indication: HYPERTENSION
     Dosage: 47.5 MG, DAILY
     Route: 048
     Dates: start: 200004
  12. NALOXEGOL OXALATE. [Concomitant]
     Active Substance: NALOXEGOL OXALATE
     Indication: CONSTIPATION
     Dosage: 25 MG, DAILY
     Route: 048
     Dates: start: 20210703
  13. RAMIPRIL. [Concomitant]
     Active Substance: RAMIPRIL
     Indication: HYPERTENSION
     Dosage: 5 MG, DAILY
     Route: 048
     Dates: start: 201806
  14. SALBUTAMOL [Concomitant]
     Active Substance: ALBUTEROL
     Indication: HYPERSENSITIVITY
     Dosage: 1 PUFF, PRN
     Dates: start: 202001
  15. COTRIMOXAZOLE [Concomitant]
     Active Substance: SULFAMETHOXAZOLE\TRIMETHOPRIM
     Indication: PROPHYLAXIS
     Dosage: 960 MG, Q3WEEKS
     Route: 048
     Dates: start: 20150602

REACTIONS (2)
  - Herpes simplex viraemia [Recovered/Resolved]
  - Neutropenia [Recovered/Resolved]

NARRATIVE: CASE EVENT DATE: 20210604
